FAERS Safety Report 25646055 (Version 1)
Quarter: 2025Q3

REPORT INFORMATION
  Report Type: Report from Study
  Country: US (occurrence: US)
  Receive Date: 20250805
  Receipt Date: 20250805
  Transmission Date: 20251021
  Serious: Yes (Hospitalization, Other)
  Sender: BAYER HEALTHCARE PHARMACEUTICALS INC.
  Company Number: US-BAYER-2025A100589

PATIENT
  Age: 86 Year
  Sex: Male

DRUGS (2)
  1. NUBEQA [Suspect]
     Active Substance: DAROLUTAMIDE
     Indication: Prostate cancer
     Dosage: 600 MG, BID
     Route: 048
     Dates: start: 202307, end: 202402
  2. NUBEQA [Suspect]
     Active Substance: DAROLUTAMIDE
     Indication: Prostate cancer
     Dosage: 300 MG, BID
     Route: 048
     Dates: start: 202402

REACTIONS (12)
  - Respiratory failure [Unknown]
  - Cardiac failure [Unknown]
  - Adrenocortical insufficiency acute [None]
  - Hypothyroidism [None]
  - Dyspnoea [Unknown]
  - Peripheral swelling [Unknown]
  - Temperature regulation disorder [Unknown]
  - Gastrointestinal disorder [Unknown]
  - Hot flush [Not Recovered/Not Resolved]
  - Pain in extremity [Unknown]
  - Gait disturbance [Recovering/Resolving]
  - General physical health deterioration [None]

NARRATIVE: CASE EVENT DATE: 20240901
